FAERS Safety Report 6946014-9 (Version None)
Quarter: 2010Q3

REPORT INFORMATION
  Report Type: 
  Country: None (occurrence: None)
  Receive Date: 20100827
  Receipt Date: 20100407
  Transmission Date: 20110219
  Serious: No
  Sender: FDA-Public Use
  Company Number: A0853989A

PATIENT
  Sex: Female

DRUGS (1)
  1. ACYCLOVIR SODIUM [Suspect]
     Indication: IMMUNOSUPPRESSANT DRUG THERAPY
     Route: 065

REACTIONS (2)
  - DRUG INTOLERANCE [None]
  - MALAISE [None]
